FAERS Safety Report 10027437 (Version 3)
Quarter: 2018Q2

REPORT INFORMATION
  Report Type: Spontaneous
  Country: US (occurrence: US)
  Receive Date: 20140321
  Receipt Date: 20180627
  Transmission Date: 20180711
  Serious: No
  Sender: FDA-Public Use
  Company Number: US-PFIZER INC-2014079868

PATIENT
  Age: 56 Year
  Sex: Female

DRUGS (1)
  1. RELPAX [Suspect]
     Active Substance: ELETRIPTAN HYDROBROMIDE
     Indication: HEADACHE
     Dosage: 40 MG, AS NEEDED (REPEAT IN 2 HOURS IF NEEDED; MAX 2/24HOURS)

REACTIONS (2)
  - Drug hypersensitivity [Unknown]
  - Off label use [Unknown]
